FAERS Safety Report 17837554 (Version 9)
Quarter: 2022Q1

REPORT INFORMATION
  Report Type: Spontaneous
  Country: GB (occurrence: GB)
  Receive Date: 20200528
  Receipt Date: 20220221
  Transmission Date: 20220423
  Serious: Yes (Other)
  Sender: FDA-Public Use
  Company Number: GB-JNJFOC-20200518527

PATIENT
  Age: 80 Year
  Sex: Male
  Weight: 77 kg

DRUGS (6)
  1. DEXAMETHASONE [Suspect]
     Active Substance: DEXAMETHASONE
     Indication: Plasma cell myeloma
     Route: 048
     Dates: start: 201502, end: 201508
  2. THALIDOMIDE [Suspect]
     Active Substance: THALIDOMIDE
     Indication: Plasma cell myeloma
     Route: 048
     Dates: start: 201502, end: 201508
  3. THALIDOMIDE [Suspect]
     Active Substance: THALIDOMIDE
     Route: 065
     Dates: start: 201502, end: 201508
  4. VELCADE [Suspect]
     Active Substance: BORTEZOMIB
     Indication: Plasma cell myeloma
     Route: 042
     Dates: start: 201502, end: 201508
  5. IXAZOMIB [Suspect]
     Active Substance: IXAZOMIB
     Indication: Plasma cell myeloma
     Dosage: 4 MILLIGRAM 25 CYCLES
     Route: 048
     Dates: start: 20151127, end: 20171109
  6. IXAZOMIB [Suspect]
     Active Substance: IXAZOMIB
     Route: 048
     Dates: start: 201502, end: 201508

REACTIONS (2)
  - Myelodysplastic syndrome [Not Recovered/Not Resolved]
  - Off label use [Unknown]

NARRATIVE: CASE EVENT DATE: 20150201
